FAERS Safety Report 24034673 (Version 2)
Quarter: 2024Q3

REPORT INFORMATION
  Report Type: Report from Study
  Country: US (occurrence: US)
  Receive Date: 20240701
  Receipt Date: 20240710
  Transmission Date: 20241017
  Serious: No
  Sender: ROCHE
  Company Number: US-ROCHE-3364580

PATIENT
  Age: 3 Year
  Sex: Female
  Weight: 9.56 kg

DRUGS (1)
  1. EVRYSDI [Suspect]
     Active Substance: RISDIPLAM
     Indication: Spinal muscular atrophy
     Dosage: 1.9 MG, 2.5 ML (ONE MONTH SUPPLY 11 REFILLS)
     Route: 048

REACTIONS (1)
  - Insomnia [Unknown]
